FAERS Safety Report 6287750-X (Version None)
Quarter: 2009Q3

REPORT INFORMATION
  Report Type: 
  Country: None (occurrence: None)
  Receive Date: 20090717
  Receipt Date: 20090217
  Transmission Date: 20100115
  Serious: Yes (Hospitalization)
  Sender: FDA-Public Use
  Company Number: 2009SP003564

PATIENT

DRUGS (4)
  1. INTEGRILIN [Suspect]
     Indication: DRUG USE FOR UNKNOWN INDICATION
  2. ASPIRIN [Concomitant]
  3. PLAVIX [Concomitant]
  4. HEPARIN [Concomitant]

REACTIONS (1)
  - HAEMORRHAGE [None]
